FAERS Safety Report 9902308 (Version 1)
Quarter: 2014Q1

REPORT INFORMATION
  Report Type: Spontaneous
  Country: US (occurrence: US)
  Receive Date: 20140217
  Receipt Date: 20140217
  Transmission Date: 20141002
  Serious: Yes (Other)
  Sender: FDA-Public Use
  Company Number: US-PFIZER INC-2014039896

PATIENT
  Age: 66 Year
  Sex: Female

DRUGS (4)
  1. FLUCONAZOLE [Suspect]
     Dosage: UNK
  2. REVLIMID [Suspect]
     Indication: PLASMA CELL MYELOMA
     Dosage: 5 MG, 1X/DAY
     Route: 048
     Dates: start: 20110323
  3. WARFARIN [Concomitant]
     Dosage: UNK
  4. ASPIRIN [Concomitant]
     Dosage: 81 MG, UNK

REACTIONS (1)
  - Thrombosis [Recovered/Resolved]
